FAERS Safety Report 5903660-9 (Version None)
Quarter: 2008Q3

REPORT INFORMATION
  Report Type: 
  Country: None (occurrence: None)
  Receive Date: 20080930
  Receipt Date: 20080916
  Transmission Date: 20090109
  Serious: Yes (Other)
  Sender: FDA-Public Use
  Company Number: US-ELI_LILLY_AND_COMPANY-US200809003625

PATIENT
  Sex: Female

DRUGS (8)
  1. BYETTA [Suspect]
     Dosage: 10 UG, UNKNOWN
     Route: 058
     Dates: start: 20070807, end: 20080729
  2. GLYBURIDE [Concomitant]
     Dosage: 3 MG, 2/D
  3. METFORMIN HCL [Concomitant]
     Dosage: 1000 MG, 2/D
  4. IMDUR [Concomitant]
     Dosage: 300 UNK, DAILY (1/D)
  5. PLAVIX [Concomitant]
     Dosage: 75 MG, DAILY (1/D)
  6. ATENOLOL [Concomitant]
     Dosage: 25 MG, 2/D
  7. ALTACE [Concomitant]
     Dosage: 5 MG, DAILY (1/D)
  8. LIPITOR [Concomitant]
     Dosage: 20 MG, DAILY (1/D)

REACTIONS (2)
  - BLOOD GLUCOSE INCREASED [None]
  - PANCREATITIS [None]
